FAERS Safety Report 14915988 (Version 1)
Quarter: 2018Q2

REPORT INFORMATION
  Report Type: Spontaneous
  Country: US (occurrence: US)
  Receive Date: 20180518
  Receipt Date: 20180518
  Transmission Date: 20180711
  Serious: No
  Sender: FDA-Public Use
  Company Number: US-ROCHE-1943350

PATIENT
  Age: 1 Month

DRUGS (1)
  1. VALCYTE [Suspect]
     Active Substance: VALGANCICLOVIR HYDROCHLORIDE
     Indication: INFECTION IN AN IMMUNOCOMPROMISED HOST
     Route: 048

REACTIONS (3)
  - Product storage error [Unknown]
  - No adverse event [Unknown]
  - Drug administration error [Unknown]
